FAERS Safety Report 11574716 (Version 11)
Quarter: 2016Q2

REPORT INFORMATION
  Report Type: Spontaneous
  Country: US (occurrence: US)
  Receive Date: 20150930
  Receipt Date: 20160412
  Transmission Date: 20160815
  Serious: Yes (Hospitalization)
  Sender: FDA-Public Use
  Company Number: US-PFIZER INC-2015312250

PATIENT
  Age: 74 Year
  Sex: Male
  Weight: 70 kg

DRUGS (17)
  1. ALLOPURINOL. [Concomitant]
     Active Substance: ALLOPURINOL
     Dosage: UNK
  2. SUTENT [Suspect]
     Active Substance: SUNITINIB MALATE
     Dosage: 25 MG, 1X/DAY
     Route: 048
     Dates: start: 20151104, end: 20160330
  3. FERROUS SULFATE. [Concomitant]
     Active Substance: FERROUS SULFATE
     Dosage: UNK
  4. LIPITOR [Concomitant]
     Active Substance: ATORVASTATIN CALCIUM
     Dosage: UNK
  5. BABY ASPIRIN [Concomitant]
     Active Substance: ASPIRIN
     Dosage: UNK
  6. MULTIVITAMIN /00097801/ [Concomitant]
     Active Substance: VITAMINS
     Dosage: UNK
  7. MAGNESIUM OXIDE. [Concomitant]
     Active Substance: MAGNESIUM OXIDE
     Dosage: UNK
  8. SUTENT [Suspect]
     Active Substance: SUNITINIB MALATE
     Indication: GASTROINTESTINAL STROMAL TUMOUR
     Dosage: 37.5 MG, 1X/DAY
     Route: 048
     Dates: start: 20150828, end: 2015
  9. PREVACID [Concomitant]
     Active Substance: LANSOPRAZOLE
     Dosage: UNK
  10. FLOMAX [Concomitant]
     Active Substance: TAMSULOSIN HYDROCHLORIDE
     Dosage: UNK
  11. CITRAL [Concomitant]
     Active Substance: CITRAL
     Dosage: UNK
  12. SUCRALFATE. [Concomitant]
     Active Substance: SUCRALFATE
     Dosage: UNK
  13. CITRACAL [Concomitant]
     Active Substance: CALCIUM CITRATE
     Dosage: UNK
  14. SENNA [Concomitant]
     Active Substance: SENNA LEAF\SENNOSIDES\SENNOSIDES A AND B
     Indication: ABDOMINAL DISCOMFORT
     Dosage: UNK
  15. OXYCONTIN [Concomitant]
     Active Substance: OXYCODONE HYDROCHLORIDE
     Dosage: UNK
     Dates: start: 201506
  16. VITAMIN D [Concomitant]
     Active Substance: CHOLECALCIFEROL
     Dosage: UNK
  17. METOPROLOL. [Concomitant]
     Active Substance: METOPROLOL
     Dosage: UNK

REACTIONS (16)
  - Skin fissures [Not Recovered/Not Resolved]
  - Neuropathy peripheral [Recovered/Resolved]
  - Erythema [Unknown]
  - Inguinal hernia [Unknown]
  - Decubitus ulcer [Recovered/Resolved]
  - Oral pain [Recovered/Resolved]
  - Blood pressure increased [Not Recovered/Not Resolved]
  - Skin exfoliation [Recovered/Resolved]
  - Pain in extremity [Recovering/Resolving]
  - Alopecia [Not Recovered/Not Resolved]
  - Gastrointestinal stromal tumour [Unknown]
  - Constipation [Recovered/Resolved]
  - Peripheral swelling [Not Recovered/Not Resolved]
  - Disease progression [Unknown]
  - Dysgeusia [Not Recovered/Not Resolved]
  - Tenderness [Recovered/Resolved]
